FAERS Safety Report 8555309-7 (Version None)
Quarter: 2012Q3

REPORT INFORMATION
  Report Type: 
  Country: None (occurrence: None)
  Receive Date: 20120731
  Receipt Date: 20120723
  Transmission Date: 20120928
  Serious: Yes (Hospitalization, Other)
  Sender: FDA-Public Use
  Company Number: US-009507513-1207USA009827

PATIENT

DRUGS (3)
  1. METFORMIN HYDROCHLORIDE [Suspect]
     Dosage: 1000 MG, BID
     Route: 048
  2. PRINIVIL [Suspect]
     Dosage: 5 MG, QD
  3. ZOCOR [Suspect]
     Dosage: 20 MG, QD
     Route: 048

REACTIONS (13)
  - ASTHENIA [None]
  - RESPIRATORY RATE INCREASED [None]
  - LACTIC ACIDOSIS [None]
  - HAEMODYNAMIC INSTABILITY [None]
  - BLOOD PRESSURE DECREASED [None]
  - SYNCOPE [None]
  - VOMITING [None]
  - RESPIRATORY DISTRESS [None]
  - NAUSEA [None]
  - BLOOD GLUCOSE DECREASED [None]
  - ESCHERICHIA URINARY TRACT INFECTION [None]
  - HYPOTHERMIA [None]
  - RENAL FAILURE ACUTE [None]
